FAERS Safety Report 23518723 (Version 1)
Quarter: 2024Q1

REPORT INFORMATION
  Report Type: Spontaneous
  Country: US (occurrence: US)
  Receive Date: 20240213
  Receipt Date: 20240213
  Transmission Date: 20240410
  Serious: Yes (Hospitalization, Other)
  Sender: FDA-Public Use
  Company Number: US-FreseniusKabi-FK202402116

PATIENT
  Age: 71 Year
  Sex: Male
  Weight: 108.84 kg

DRUGS (4)
  1. FENTANYL [Suspect]
     Active Substance: FENTANYL\FENTANYL CITRATE
     Indication: Product used for unknown indication
     Dosage: ROUTE: INTRATHECAL
  2. FENTANYL [Suspect]
     Active Substance: FENTANYL\FENTANYL CITRATE
     Dosage: DOUBLED THE DOSE?ROUTE: INTRATHECAL
     Dates: start: 2023
  3. PRIALT [Suspect]
     Active Substance: ZICONOTIDE ACETATE
     Indication: Pain
     Dosage: ROUTE: INTRATHECAL; FORM OF ADMINISTRATION:  INFUSION
  4. PRIALT [Suspect]
     Active Substance: ZICONOTIDE ACETATE
     Indication: Back pain

REACTIONS (11)
  - Bipolar disorder [Not Recovered/Not Resolved]
  - Loss of consciousness [Unknown]
  - Fall [Unknown]
  - Oedema peripheral [Unknown]
  - Overdose [Unknown]
  - Off label use [Unknown]
  - Drug ineffective [Unknown]
  - Pain in extremity [Unknown]
  - Medical device site pain [Unknown]
  - Somnolence [Unknown]
  - Nightmare [Not Recovered/Not Resolved]

NARRATIVE: CASE EVENT DATE: 20230101
